FAERS Safety Report 6616090-1 (Version None)
Quarter: 2010Q1

REPORT INFORMATION
  Report Type: 
  Country: None (occurrence: None)
  Receive Date: 20100305
  Receipt Date: 20100222
  Transmission Date: 20100710
  Serious: Yes (Hospitalization, Other)
  Sender: FDA-Public Use
  Company Number: PHEH2008US09364

PATIENT
  Sex: Female
  Weight: 80.726 kg

DRUGS (26)
  1. ZOMETA [Suspect]
     Dosage: 4MG MONTHLY
     Route: 042
     Dates: start: 20020101
  2. FEMARA [Concomitant]
     Dosage: 2.5MG DAILY
     Route: 048
     Dates: start: 20020901
  3. PROTONIX [Concomitant]
  4. METOPROLOL [Concomitant]
  5. EFFEXOR [Concomitant]
  6. LISINOPRIL [Concomitant]
  7. OXYCONTIN [Concomitant]
  8. HYDROCODONE [Concomitant]
  9. NEURONTIN [Concomitant]
  10. ASPIRIN [Concomitant]
  11. COMPAZINE [Concomitant]
  12. FLUOXETINE HCL [Concomitant]
  13. ACETAMINOPHEN AND HYDROCODONE BITARTRATE [Concomitant]
  14. IMODIUM A-D [Concomitant]
  15. LOMOTIL [Concomitant]
  16. OMEPRAZOLE [Concomitant]
  17. MORPHINE [Concomitant]
  18. PROCHLORPERAZINE [Concomitant]
  19. CAPECITABINE [Concomitant]
  20. DICYCLOMINE [Concomitant]
  21. DIMENHYDRINATE [Concomitant]
  22. ZANTAC [Concomitant]
  23. AMOXICILLIN [Concomitant]
  24. ADRIAMYCIN PFS [Concomitant]
  25. CYTOXAN [Concomitant]
  26. DEXAMETHASONE [Concomitant]

REACTIONS (24)
  - ABDOMINAL PAIN [None]
  - ANXIETY [None]
  - BACK PAIN [None]
  - BONE DISORDER [None]
  - BONE SWELLING [None]
  - DEPRESSION [None]
  - DIARRHOEA [None]
  - EMOTIONAL DISTRESS [None]
  - HYPOAESTHESIA [None]
  - HYPOKALAEMIA [None]
  - HYPONATRAEMIA [None]
  - INFECTION [None]
  - INJURY [None]
  - METASTASES TO LIVER [None]
  - NAUSEA [None]
  - OSTEONECROSIS [None]
  - PAIN [None]
  - PHYSICAL DISABILITY [None]
  - PSEUDOMEMBRANOUS COLITIS [None]
  - SCAR [None]
  - SPINAL OSTEOARTHRITIS [None]
  - SWELLING FACE [None]
  - TOOTH EXTRACTION [None]
  - VOMITING [None]
